FAERS Safety Report 6838753-5 (Version None)
Quarter: 2010Q3

REPORT INFORMATION
  Report Type: 
  Country: None (occurrence: None)
  Receive Date: 20100713
  Receipt Date: 20070716
  Transmission Date: 20110219
  Serious: No
  Sender: FDA-Public Use
  Company Number: US-PFIZER INC-2007047327

PATIENT
  Sex: Female
  Weight: 81.2 kg

DRUGS (5)
  1. CHANTIX [Suspect]
     Indication: SMOKING CESSATION THERAPY
     Route: 048
     Dates: start: 20070209, end: 20070513
  2. CHANTIX [Suspect]
     Indication: TOBACCO ABUSE
  3. LIPITOR [Concomitant]
  4. ANTIHYPERTENSIVES [Concomitant]
  5. SYNTHROID [Concomitant]

REACTIONS (6)
  - ABNORMAL DREAMS [None]
  - CHILLS [None]
  - DIARRHOEA [None]
  - FEELING COLD [None]
  - NAUSEA [None]
  - VOMITING [None]
